FAERS Safety Report 4821777-7 (Version None)
Quarter: 2005Q4

REPORT INFORMATION
  Report Type: 
  Country: None (occurrence: None)
  Receive Date: 20051104
  Receipt Date: 20051104
  Transmission Date: 20060501
  Serious: Yes (Hospitalization)
  Sender: FDA-Public Use
  Company Number: None

PATIENT
  Age: 16 Year
  Sex: Female
  Weight: 58.6 kg

DRUGS (1)
  1. LAMICTAL [Suspect]
     Indication: CONVULSION

REACTIONS (3)
  - CONJUNCTIVITIS [None]
  - PHARYNGITIS BACTERIAL [None]
  - STEVENS-JOHNSON SYNDROME [None]
